FAERS Safety Report 13680060 (Version 1)
Quarter: 2017Q2

REPORT INFORMATION
  Report Type: Spontaneous
  Country: US (occurrence: US)
  Receive Date: 20170622
  Receipt Date: 20170622
  Transmission Date: 20170830
  Serious: No
  Sender: FDA-Public Use
  Company Number: US-PFIZER INC-2017266750

PATIENT
  Sex: Male

DRUGS (4)
  1. TIKOSYN [Suspect]
     Active Substance: DOFETILIDE
     Indication: ATRIAL FIBRILLATION
     Dosage: UNK
  2. XYLITOL [Concomitant]
     Active Substance: XYLITOL
  3. CITRULLINE [Concomitant]
     Active Substance: CITRULLINE
  4. ARGININE [Concomitant]
     Active Substance: ARGININE

REACTIONS (1)
  - Drug ineffective [Unknown]
